FAERS Safety Report 7471802-2 (Version None)
Quarter: 2011Q2

REPORT INFORMATION
  Report Type: 
  Country: None (occurrence: None)
  Receive Date: 20110511
  Receipt Date: 20100517
  Transmission Date: 20111010
  Serious: No
  Sender: FDA-Public Use
  Company Number: A0859996A

PATIENT
  Age: 72 Year
  Sex: Female

DRUGS (3)
  1. XELODA [Concomitant]
  2. WARFARIN [Concomitant]
  3. TYKERB [Suspect]
     Indication: BREAST CANCER
     Dosage: 1000MG PER DAY
     Route: 048
     Dates: start: 20091101, end: 20100516

REACTIONS (5)
  - ILEITIS [None]
  - FATIGUE [None]
  - ERUCTATION [None]
  - HICCUPS [None]
  - NAUSEA [None]
